FAERS Safety Report 13292346 (Version 1)
Quarter: 2017Q1

REPORT INFORMATION
  Report Type: Spontaneous
  Country: US (occurrence: US)
  Receive Date: 20170302
  Receipt Date: 20170302
  Transmission Date: 20170428
  Serious: No
  Sender: FDA-Public Use
  Company Number: None

PATIENT
  Age: 47 Year
  Sex: Female

DRUGS (1)
  1. TEMOZOLOMIDE CAP 100MG [Suspect]
     Active Substance: TEMOZOLOMIDE
     Indication: CEREBRAL DISORDER

REACTIONS (3)
  - Dyspepsia [None]
  - Gastrointestinal disorder [None]
  - Burning sensation [None]

NARRATIVE: CASE EVENT DATE: 20170228
